APPROVED DRUG PRODUCT: CEPHALOTHIN SODIUM W/ DEXTROSE IN PLASTIC CONTAINER
Active Ingredient: CEPHALOTHIN SODIUM
Strength: EQ 20MG BASE/ML
Dosage Form/Route: INJECTABLE;INJECTION
Application: A062730 | Product #001
Applicant: BAXTER HEALTHCARE CORP
Approved: Mar 5, 1987 | RLD: No | RS: No | Type: DISCN